FAERS Safety Report 12455354 (Version 1)
Quarter: 2016Q2

REPORT INFORMATION
  Report Type: Spontaneous
  Country: CN (occurrence: CN)
  Receive Date: 20160610
  Receipt Date: 20160610
  Transmission Date: 20160815
  Serious: Yes (Other)
  Sender: FDA-Public Use
  Company Number: CN-JNJFOC-20160606440

PATIENT

DRUGS (2)
  1. RISPERIDONE. [Suspect]
     Active Substance: RISPERIDONE
     Indication: SCHIZOPHRENIA
     Route: 065
  2. RISPERIDONE. [Suspect]
     Active Substance: RISPERIDONE
     Indication: SCHIZOPHRENIA
     Dosage: DOSE INCREASED TO 3 MG WITH AN AVERAGE OF 2-3 MG TWICE A DAY
     Route: 065

REACTIONS (9)
  - Hyperprolactinaemia [Unknown]
  - Orthostatic hypotension [Unknown]
  - Vomiting [Recovering/Resolving]
  - Nausea [Recovering/Resolving]
  - Liver injury [Unknown]
  - Anxiety [Unknown]
  - Tachycardia [Unknown]
  - Insomnia [Unknown]
  - Extrapyramidal disorder [Unknown]
